FAERS Safety Report 20068897 (Version 1)
Quarter: 2021Q4

REPORT INFORMATION
  Report Type: Spontaneous
  Country: CN (occurrence: CN)
  Receive Date: 20211115
  Receipt Date: 20211115
  Transmission Date: 20220303
  Serious: Yes (Hospitalization, Disabling, Other)
  Sender: FDA-Public Use
  Company Number: CN-BAYER-2021A248641

PATIENT
  Age: 77 Year
  Sex: Male
  Weight: 67 kg

DRUGS (2)
  1. AVELOX [Suspect]
     Active Substance: MOXIFLOXACIN HYDROCHLORIDE
     Indication: Pneumonia
     Dosage: 0.4 G, QD
     Route: 041
     Dates: start: 20211022, end: 20211026
  2. AVELOX [Suspect]
     Active Substance: MOXIFLOXACIN HYDROCHLORIDE
     Indication: Bronchitis chronic

REACTIONS (5)
  - Atrioventricular block [Recovering/Resolving]
  - Sinus tachycardia [Recovering/Resolving]
  - Bundle branch block right [Recovering/Resolving]
  - Supraventricular extrasystoles [Recovering/Resolving]
  - Cardiac autonomic neuropathy [Recovering/Resolving]

NARRATIVE: CASE EVENT DATE: 20211026
